FAERS Safety Report 7445587-X (Version None)
Quarter: 2011Q2

REPORT INFORMATION
  Report Type: 
  Country: None (occurrence: None)
  Receive Date: 20110429
  Receipt Date: 20110427
  Transmission Date: 20111010
  Serious: Yes (Other)
  Sender: FDA-Public Use
  Company Number: US-ROCHE-749625

PATIENT
  Sex: Male
  Weight: 104.3 kg

DRUGS (1)
  1. ACCUTANE [Suspect]
     Indication: ACNE
     Route: 065
     Dates: start: 19980101, end: 19991201

REACTIONS (5)
  - GASTROINTESTINAL INJURY [None]
  - SUICIDAL IDEATION [None]
  - DEPRESSION [None]
  - COLITIS ULCERATIVE [None]
  - IRRITABLE BOWEL SYNDROME [None]
